FAERS Safety Report 6492606-3 (Version None)
Quarter: 2009Q4

REPORT INFORMATION
  Report Type: 
  Country: None (occurrence: None)
  Receive Date: 20091211
  Receipt Date: 20091211
  Transmission Date: 20100525
  Serious: No
  Sender: FDA-Public Use
  Company Number: None

PATIENT
  Age: 76 Year
  Sex: Female
  Weight: 63.5036 kg

DRUGS (1)
  1. PLAQUENIL [Suspect]
     Indication: CONNECTIVE TISSUE DISORDER
     Dosage: 200 MG TWICE DAILY
     Dates: start: 20090922, end: 20091024

REACTIONS (1)
  - RASH ERYTHEMATOUS [None]
